FAERS Safety Report 9594693 (Version 1)
Quarter: 2013Q3

REPORT INFORMATION
  Report Type: Spontaneous
  Country: US (occurrence: None)
  Receive Date: 20130927
  Receipt Date: 20130927
  Transmission Date: 20140515
  Serious: Yes (Hospitalization)
  Sender: FDA-Public Use
  Company Number: CABO-13003101

PATIENT
  Age: 70 Year
  Sex: Female
  Weight: 60.5 kg

DRUGS (15)
  1. COMETRIQ [Suspect]
     Indication: THYROID CANCER
     Dosage: 140 MG, QD-ON ONE WEEK, OFF ONE WEEK
     Route: 048
     Dates: start: 20130215, end: 20130611
  2. LYRICA [Concomitant]
  3. LISINOPRIL [Concomitant]
  4. PREMARIN [Concomitant]
  5. TEMAZEPAM [Concomitant]
  6. PANTOPRAZOLE [Concomitant]
  7. LEVOXYL [Concomitant]
  8. MORPHINE [Concomitant]
  9. MOTRIN [Concomitant]
  10. SIDDA [Concomitant]
  11. SELENIUM [Concomitant]
  12. CALCIUM [Concomitant]
  13. VITAMIN D [Concomitant]
  14. FOLIC ACID [Concomitant]
  15. CARBONAL [Concomitant]

REACTIONS (3)
  - Nausea [None]
  - Malaise [None]
  - Asthenia [None]
